FAERS Safety Report 9871467 (Version 4)
Quarter: 2014Q1

REPORT INFORMATION
  Report Type: Report from Study
  Country: GB (occurrence: GB)
  Receive Date: 20140205
  Receipt Date: 20140310
  Transmission Date: 20141002
  Serious: Yes (Hospitalization, Other)
  Sender: FDA-Public Use
  Company Number: GB-BRISTOL-MYERS SQUIBB COMPANY-20058442

PATIENT
  Age: 73 Year
  Sex: Male
  Weight: 84 kg

DRUGS (14)
  1. IPILIMUMAB [Suspect]
     Indication: SMALL CELL LUNG CANCER
     Dosage: MOST RECENT:27DEC2013
     Dates: start: 20131115
  2. ETOPOSIDE [Suspect]
     Indication: SMALL CELL LUNG CANCER
     Dosage: LAST DOSE:27DEC2013
     Dates: start: 20131007
  3. CARBOPLATIN [Suspect]
     Indication: SMALL CELL LUNG CANCER
     Dosage: LAST DOSE:27DEC2013
     Dates: start: 20131007
  4. SALBUTAMOL [Concomitant]
     Dosage: 1DF:1 PUFF
     Route: 055
     Dates: start: 2003
  5. TAMSULOSIN [Concomitant]
     Route: 048
     Dates: start: 2011
  6. RAMIPRIL [Concomitant]
     Route: 048
     Dates: start: 2011
  7. LACTULOSE [Concomitant]
     Route: 048
     Dates: start: 20131008
  8. METOCLOPRAMIDE [Concomitant]
     Route: 048
     Dates: start: 20131007
  9. ONDANSETRON [Concomitant]
     Route: 048
     Dates: start: 20131115
  10. CETRIZINE [Concomitant]
     Route: 048
     Dates: start: 20131227
  11. E45 CREAM [Concomitant]
     Dosage: 1DF:4 APPLICATIONS
     Route: 061
     Dates: start: 20131227
  12. ALLOPURINOL [Concomitant]
     Dates: start: 20131229
  13. CO-AMOXICLAV [Concomitant]
     Dosage: 1DF=500/125-UNITS NOS
  14. OMEPRAZOLE [Concomitant]
     Dates: start: 20131114

REACTIONS (2)
  - Pyrexia [Recovered/Resolved]
  - Atrial fibrillation [Recovered/Resolved with Sequelae]
